FAERS Safety Report 6848331-X (Version None)
Quarter: 2010Q3

REPORT INFORMATION
  Report Type: 
  Country: None (occurrence: None)
  Receive Date: 20100716
  Receipt Date: 20100706
  Transmission Date: 20110219
  Serious: Yes (Other)
  Sender: FDA-Public Use
  Company Number: DE-PFIZER INC-2010084613

PATIENT
  Sex: Female

DRUGS (1)
  1. LYRICA [Suspect]
     Indication: EPILEPSY
     Dosage: 400 MG, 1X/DAY
     Dates: start: 20090101, end: 20100401

REACTIONS (4)
  - NERVOUSNESS [None]
  - PERSONALITY CHANGE [None]
  - PERSONALITY DISORDER [None]
  - SLEEP DISORDER [None]
